FAERS Safety Report 17693418 (Version 1)
Quarter: 2020Q2

REPORT INFORMATION
  Report Type: Spontaneous
  Country: US (occurrence: US)
  Receive Date: 20200421
  Receipt Date: 20200421
  Transmission Date: 20200714
  Serious: Yes (Hospitalization)
  Sender: FDA-Public Use
  Company Number: None

PATIENT
  Age: 9 Year
  Sex: Female
  Weight: 60.3 kg

DRUGS (19)
  1. THIOGUANINE (6-TG) [Suspect]
     Active Substance: THIOGUANINE ANHYDROUS
     Dates: end: 20200407
  2. ATIVAN [Concomitant]
     Active Substance: LORAZEPAM
  3. ATOVAQUONE. [Concomitant]
     Active Substance: ATOVAQUONE
  4. CLONIDINE. [Concomitant]
     Active Substance: CLONIDINE
  5. LIDOCAINE CREAM [Concomitant]
     Active Substance: LIDOCAINE
  6. CYCLOPHOSPHAMIDE. [Suspect]
     Active Substance: CYCLOPHOSPHAMIDE
     Dates: end: 20200407
  7. CYTARABINE. [Suspect]
     Active Substance: CYTARABINE
     Dates: end: 20200411
  8. MERCAPTOPURINE. [Suspect]
     Active Substance: MERCAPTOPURINE
     Dates: end: 20200330
  9. VINCRISTINE SULFATE. [Suspect]
     Active Substance: VINCRISTINE SULFATE
     Dates: end: 20200110
  10. TYLENOL [Concomitant]
     Active Substance: ACETAMINOPHEN
  11. ZOFRAN [Concomitant]
     Active Substance: ONDANSETRON HYDROCHLORIDE
  12. MIRALAX [Concomitant]
     Active Substance: POLYETHYLENE GLYCOL 3350
  13. DEXAMETHASONE. [Suspect]
     Active Substance: DEXAMETHASONE
     Dates: end: 20200114
  14. ETOPOSIDE (VP-16) [Suspect]
     Active Substance: ETOPOSIDE
     Dates: end: 20200407
  15. METHOTREXATE. [Suspect]
     Active Substance: METHOTREXATE
     Dates: end: 20200323
  16. VORICONAZOLE. [Concomitant]
     Active Substance: VORICONAZOLE
  17. SCOPALAMINE [Concomitant]
     Active Substance: SCOPOLAMINE
  18. AMLODIPINE [Concomitant]
     Active Substance: AMLODIPINE BESYLATE
  19. HEPARIN [Concomitant]
     Active Substance: HEPARIN SODIUM

REACTIONS (8)
  - Neutropenia [None]
  - Klebsiella test positive [None]
  - Vomiting [None]
  - Nausea [None]
  - Mucosal inflammation [None]
  - Hypophagia [None]
  - Diarrhoea [None]
  - Septic shock [None]

NARRATIVE: CASE EVENT DATE: 20200417
